FAERS Safety Report 5917202-5 (Version None)
Quarter: 2008Q4

REPORT INFORMATION
  Report Type: 
  Country: None (occurrence: None)
  Receive Date: 20081009
  Receipt Date: 20081003
  Transmission Date: 20090506
  Serious: Yes (Hospitalization)
  Sender: FDA-Public Use
  Company Number: 034778

PATIENT
  Age: 56 Year
  Sex: Male
  Weight: 79.7 kg

DRUGS (3)
  1. WARFARIN SODIUM [Suspect]
  2. TEMODAR [Suspect]
     Indication: GLIOBLASTOMA MULTIFORME
     Dosage: 100 MG/M2; 200 MG
     Dates: start: 20080826, end: 20080917
  3. TEMODAR [Suspect]
     Indication: GLIOBLASTOMA MULTIFORME
     Dosage: 100 MG/M2; 200 MG
     Dates: start: 20080314

REACTIONS (2)
  - FALL [None]
  - SUBDURAL HAEMATOMA [None]
